FAERS Safety Report 20574229 (Version 1)
Quarter: 2022Q1

REPORT INFORMATION
  Report Type: Spontaneous
  Country: CH (occurrence: CH)
  Receive Date: 20220309
  Receipt Date: 20220309
  Transmission Date: 20220424
  Serious: Yes (Hospitalization, Other)
  Sender: FDA-Public Use
  Company Number: None

PATIENT
  Age: 84 Year
  Sex: Female
  Weight: 56 kg

DRUGS (5)
  1. FLUOROURACIL [Suspect]
     Active Substance: FLUOROURACIL
     Indication: Colon cancer
     Dosage: 2500 MG
     Route: 042
     Dates: start: 20210428, end: 20210512
  2. ZALTRAP [Suspect]
     Active Substance: ZIV-AFLIBERCEPT
     Indication: Colon cancer
     Dosage: 228 MG
     Route: 042
     Dates: start: 20210428, end: 20210512
  3. IRINOTECAN [Suspect]
     Active Substance: IRINOTECAN
     Indication: Colon cancer
     Dosage: 132 MG
     Route: 042
     Dates: start: 20210428, end: 20210512
  4. ASPIRIN [Concomitant]
     Active Substance: ASPIRIN
     Dosage: UNK
  5. ENALAPRIL [Concomitant]
     Active Substance: ENALAPRIL
     Dosage: UNK

REACTIONS (1)
  - Neutropenic colitis [Recovered/Resolved]

NARRATIVE: CASE EVENT DATE: 20210519
